FAERS Safety Report 6967575-X (Version None)
Quarter: 2010Q3

REPORT INFORMATION
  Report Type: 
  Country: None (occurrence: None)
  Receive Date: 20100907
  Receipt Date: 20100825
  Transmission Date: 20110219
  Serious: Yes (Other)
  Sender: FDA-Public Use
  Company Number: ID-PFIZER INC-2010107966

PATIENT
  Age: 40 Year
  Sex: Male

DRUGS (2)
  1. CEFOPERAZONE SODIUM, SULBACTAM SODIUM [Suspect]
     Dosage: 1 G, 2X/DAY
     Route: 042
     Dates: start: 20100824, end: 20100825
  2. ACETYLCYSTEINE [Concomitant]
     Dosage: UNK

REACTIONS (3)
  - ERYTHEMA [None]
  - PARAESTHESIA [None]
  - PRURITUS [None]
